FAERS Safety Report 7653811-3 (Version None)
Quarter: 2011Q3

REPORT INFORMATION
  Report Type: 
  Country: None (occurrence: None)
  Receive Date: 20110801
  Receipt Date: 20110801
  Transmission Date: 20111222
  Serious: Yes (Hospitalization)
  Sender: FDA-Public Use
  Company Number: None

PATIENT
  Age: 20 Year
  Sex: Male
  Weight: 83.9154 kg

DRUGS (3)
  1. RECLAST [Suspect]
     Indication: SPINAL CORD INJURY
     Dosage: 5 MG 2/YR INTRAVENOUS INFUSION
     Route: 042
     Dates: start: 20101104, end: 20110325
  2. CALCIUM (TUMS) [Concomitant]
  3. VITAMIN D [Concomitant]

REACTIONS (1)
  - DRUG DELIVERY DEVICE IMPLANTATION [None]
